FAERS Safety Report 12495539 (Version 1)
Quarter: 2016Q2

REPORT INFORMATION
  Report Type: Spontaneous
  Country: US (occurrence: US)
  Receive Date: 20160624
  Receipt Date: 20160624
  Transmission Date: 20160815
  Serious: Yes (Hospitalization)
  Sender: FDA-Public Use
  Company Number: US-PFIZER INC-2016304071

PATIENT
  Age: 17 Year
  Sex: Male

DRUGS (1)
  1. BENEFIX [Suspect]
     Active Substance: COAGULATION FACTOR IX RECOMBINANT HUMAN\ISOPROPYL ALCOHOL
     Indication: HAEMORRHAGE
     Dosage: 3700UNITS WEEKLY PRN DAILY MINOR BLEED; 7400 PRN DAILY FOR MAJOR BLEED
     Route: 042
     Dates: start: 20151204

REACTIONS (2)
  - Tooth impacted [Unknown]
  - Haemorrhage [Unknown]
